FAERS Safety Report 7609294-2 (Version None)
Quarter: 2011Q3

REPORT INFORMATION
  Report Type: 
  Country: None (occurrence: None)
  Receive Date: 20110714
  Receipt Date: 20110701
  Transmission Date: 20111222
  Serious: Yes (Hospitalization)
  Sender: FDA-Public Use
  Company Number: PHHY2011FR59265

PATIENT
  Sex: Male

DRUGS (14)
  1. IMODIUM [Concomitant]
  2. METFORMIN HYDROCHLORIDE [Suspect]
     Indication: TYPE 2 DIABETES MELLITUS
     Dosage: UNK UKN, UNK
     Dates: start: 20110301
  3. EXFORGE [Suspect]
     Dosage: UNK UKN, UNK
     Dates: end: 20110414
  4. SERC [Concomitant]
  5. SARTAN [Concomitant]
  6. ACETAMINOPHEN AND TRAMADOL HCL [Concomitant]
  7. ACETAMINOPHEN [Concomitant]
  8. ENALAPRIL MALEATE AND HYDROCHLOROTHIAZIDE [Suspect]
     Dosage: UNK UKN, UNK
     Dates: end: 20110414
  9. CORDARONE [Concomitant]
  10. AMARYL [Concomitant]
  11. CALCIPARINE [Concomitant]
  12. TRAMADOL HCL [Concomitant]
  13. NEXIUM [Suspect]
     Dosage: 40 MG, QD
     Dates: end: 20110421
  14. ANGIOTENSIN CONVERTING ENZYME BLOCKERS [Concomitant]

REACTIONS (6)
  - GENERALISED OEDEMA [None]
  - PROTEINURIA [None]
  - RENAL FAILURE ACUTE [None]
  - GENERAL PHYSICAL CONDITION ABNORMAL [None]
  - BLOOD CREATININE INCREASED [None]
  - ANAEMIA [None]
